FAERS Safety Report 6124109-X (Version None)
Quarter: 2009Q1

REPORT INFORMATION
  Report Type: 
  Country: None (occurrence: None)
  Receive Date: 20090319
  Receipt Date: 20090310
  Transmission Date: 20090719
  Serious: Yes (Life-Threatening)
  Sender: FDA-Public Use
  Company Number: GB-SANOFI-SYNTHELABO-A01200902673

PATIENT
  Age: 59 Year
  Sex: Female
  Weight: 51 kg

DRUGS (2)
  1. LANSOPRAZOLE [Suspect]
     Indication: DRUG USE FOR UNKNOWN INDICATION
     Dosage: UNK
     Route: 048
     Dates: start: 20081001, end: 20081201
  2. HYDROXYCHLOROQUINE [Suspect]
     Route: 048
     Dates: start: 20081201

REACTIONS (1)
  - TOXIC EPIDERMAL NECROLYSIS [None]
